FAERS Safety Report 18672933 (Version 2)
Quarter: 2021Q3

REPORT INFORMATION
  Report Type: Spontaneous
  Country: US (occurrence: US)
  Receive Date: 20201228
  Receipt Date: 20210913
  Transmission Date: 20211014
  Serious: No
  Sender: FDA-Public Use
  Company Number: US-PFIZER INC-2020510986

PATIENT
  Age: 48 Year
  Sex: Female

DRUGS (2)
  1. XELJANZ XR [Suspect]
     Active Substance: TOFACITINIB CITRATE
     Dosage: 11 MG
     Dates: start: 20200706
  2. XELJANZ XR [Suspect]
     Active Substance: TOFACITINIB CITRATE
     Dosage: 11 MG
     Dates: start: 20201129, end: 202102

REACTIONS (7)
  - Hypersensitivity [Unknown]
  - Headache [Unknown]
  - Diarrhoea [Unknown]
  - COVID-19 [Unknown]
  - Weight increased [Unknown]
  - Product dose omission issue [Unknown]
  - Increased appetite [Unknown]

NARRATIVE: CASE EVENT DATE: 2020
